FAERS Safety Report 7867455-1 (Version None)
Quarter: 2011Q4

REPORT INFORMATION
  Report Type: 
  Country: None (occurrence: None)
  Receive Date: 20111028
  Receipt Date: 20111026
  Transmission Date: 20120403
  Serious: Yes (Hospitalization)
  Sender: FDA-Public Use
  Company Number: US-VERTEX PHARMACEUTICALS INC.-AE-2011-000647

PATIENT
  Sex: Female
  Weight: 65.83 kg

DRUGS (4)
  1. INCIVEK [Suspect]
     Indication: HEPATITIS C
     Route: 048
     Dates: start: 20110724
  2. CYMBALTA [Concomitant]
     Indication: DEPRESSION
     Route: 048
  3. RIBAVIRIN [Concomitant]
     Indication: HEPATITIS C
     Route: 048
     Dates: start: 20110724
  4. PEGASYS [Concomitant]
     Indication: HEPATITIS C
     Route: 058
     Dates: start: 20110724

REACTIONS (4)
  - HEPATIC CIRRHOSIS [None]
  - ANORECTAL DISCOMFORT [None]
  - HEADACHE [None]
  - DIARRHOEA [None]
